FAERS Safety Report 9161264 (Version 2)
Quarter: 2013Q2

REPORT INFORMATION
  Report Type: Spontaneous
  Country: US (occurrence: US)
  Receive Date: 20130313
  Receipt Date: 20130624
  Transmission Date: 20140414
  Serious: No
  Sender: FDA-Public Use
  Company Number: US-009507513-1302USA012902

PATIENT
  Age: 21 Year
  Sex: Female
  Weight: 80.73 kg

DRUGS (3)
  1. IMPLANON [Suspect]
     Indication: CONTRACEPTION
     Dosage: 1 DF, UNK
     Route: 059
     Dates: start: 20121213, end: 20130221
  2. IMPLANON [Suspect]
     Dosage: 2 DF, UNK
     Route: 059
     Dates: start: 20130221
  3. LEXAPRO [Concomitant]

REACTIONS (5)
  - Implant site induration [Recovered/Resolved]
  - Implant site fibrosis [Recovering/Resolving]
  - Implant site cellulitis [Recovered/Resolved]
  - Implant site pain [Recovered/Resolved]
  - Implant site infection [Recovered/Resolved]
